FAERS Safety Report 9805705 (Version 1)
Quarter: 2014Q1

REPORT INFORMATION
  Report Type: Spontaneous
  Country: US (occurrence: US)
  Receive Date: 20140109
  Receipt Date: 20140109
  Transmission Date: 20141002
  Serious: Yes (Death, Hospitalization)
  Sender: FDA-Public Use
  Company Number: US-UCBSA-108495

PATIENT
  Age: 56 Year
  Sex: Female

DRUGS (4)
  1. ACETAMINOPHEN /HYDROCODONE [Suspect]
     Route: 048
  2. AMLODIPINE [Suspect]
     Route: 048
  3. LISINOPRIL [Suspect]
     Route: 048
  4. INSULIN [Suspect]
     Route: 048

REACTIONS (1)
  - Toxicity to various agents [Fatal]
